FAERS Safety Report 16939837 (Version 1)
Quarter: 2019Q4

REPORT INFORMATION
  Report Type: Spontaneous
  Country: TR (occurrence: TR)
  Receive Date: 20191021
  Receipt Date: 20191021
  Transmission Date: 20200122
  Serious: Yes (Hospitalization, Other)
  Sender: FDA-Public Use
  Company Number: TR-GLAXOSMITHKLINE-TR2019GSK186260

PATIENT
  Age: 51 Year
  Sex: Female

DRUGS (1)
  1. CEFUROXIME SODIUM. [Suspect]
     Active Substance: CEFUROXIME SODIUM
     Indication: TOOTH ABSCESS
     Dosage: 1 G, UNK
     Route: 030

REACTIONS (14)
  - Respiratory distress [Recovered/Resolved]
  - Rectal haemorrhage [Recovered/Resolved]
  - Colitis ischaemic [Recovered/Resolved]
  - Oedema mucosal [Recovered/Resolved]
  - Anaphylactic reaction [Recovered/Resolved]
  - Abdominal pain [Recovered/Resolved]
  - Diarrhoea haemorrhagic [Recovered/Resolved]
  - Blood pressure systolic decreased [Recovered/Resolved]
  - Extravasation [Recovered/Resolved]
  - Intestinal ischaemia [Recovered/Resolved]
  - Syncope [Recovered/Resolved]
  - Rash erythematous [Recovered/Resolved]
  - Mucosal ulceration [Recovered/Resolved]
  - Gastrointestinal mucosal necrosis [Recovered/Resolved]
